FAERS Safety Report 12412628 (Version 6)
Quarter: 2017Q2

REPORT INFORMATION
  Report Type: Spontaneous
  Country: FR (occurrence: FR)
  Receive Date: 20160527
  Receipt Date: 20170502
  Transmission Date: 20170830
  Serious: Yes (Hospitalization, Disabling, Congenital Anomaly, Other)
  Sender: FDA-Public Use
  Company Number: FR-ABBVIE-16P-056-1638240-00

PATIENT
  Sex: Female

DRUGS (1)
  1. DEPAKINE CHRONO [Suspect]
     Active Substance: VALPROATE SODIUM
     Indication: MATERNAL EXPOSURE TIMING UNSPECIFIED
     Route: 064

REACTIONS (18)
  - Motor dysfunction [Not Recovered/Not Resolved]
  - Haemangioma [Unknown]
  - Respiratory disorder [Unknown]
  - Gastrooesophageal reflux disease [Unknown]
  - Myopia [Unknown]
  - Language disorder [Unknown]
  - Foetal exposure during pregnancy [Unknown]
  - Peroneal nerve palsy [Unknown]
  - Visual impairment [Unknown]
  - Astigmatism [Unknown]
  - Dysphagia [Unknown]
  - Foetal anticonvulsant syndrome [Unknown]
  - Dysmorphism [Unknown]
  - Asthma [Not Recovered/Not Resolved]
  - Disability [Not Recovered/Not Resolved]
  - Bronchiolitis [Unknown]
  - Hypermobility syndrome [Unknown]
  - Educational problem [Unknown]

NARRATIVE: CASE EVENT DATE: 2003
